FAERS Safety Report 18912768 (Version 1)
Quarter: 2021Q1

REPORT INFORMATION
  Report Type: Report from Study
  Country: US (occurrence: US)
  Receive Date: 20210218
  Receipt Date: 20210218
  Transmission Date: 20210420
  Serious: Yes (Other)
  Sender: FDA-Public Use
  Company Number: US-JNJFOC-20210218112

PATIENT
  Age: 40 Year
  Sex: Female

DRUGS (3)
  1. SPRAVATO [Suspect]
     Active Substance: ESKETAMINE
     Indication: DEPRESSION
     Dates: start: 20191203, end: 20191203
  2. SPRAVATO [Suspect]
     Active Substance: ESKETAMINE
     Dates: start: 20210208, end: 20210208
  3. SPRAVATO [Suspect]
     Active Substance: ESKETAMINE
     Dates: start: 20191206, end: 20210201

REACTIONS (3)
  - Diplopia [Recovered/Resolved]
  - Dizziness [Recovered/Resolved]
  - Paraesthesia oral [Recovered/Resolved]

NARRATIVE: CASE EVENT DATE: 20210208
